FAERS Safety Report 7122057-X (Version None)
Quarter: 2010Q4

REPORT INFORMATION
  Report Type: 
  Country: None (occurrence: None)
  Receive Date: 20101124
  Receipt Date: 20101117
  Transmission Date: 20110411
  Serious: Yes (Other)
  Sender: FDA-Public Use
  Company Number: B0685225A

PATIENT
  Age: 48 Year
  Sex: Female

DRUGS (4)
  1. TYKERB [Suspect]
     Route: 048
  2. TYKERB [Suspect]
     Dosage: 750MG PER DAY
     Route: 048
  3. XELODA [Concomitant]
     Route: 048
  4. XELODA [Concomitant]
     Dosage: 1800MG PER DAY
     Route: 048

REACTIONS (1)
  - CYSTITIS HAEMORRHAGIC [None]
